FAERS Safety Report 6627070-4 (Version None)
Quarter: 2010Q1

REPORT INFORMATION
  Report Type: 
  Country: None (occurrence: None)
  Receive Date: 20100311
  Receipt Date: 20090708
  Transmission Date: 20100710
  Serious: No
  Sender: FDA-Public Use
  Company Number: A0795992A

PATIENT
  Age: 59 Year
  Sex: Female

DRUGS (3)
  1. NICORETTE [Suspect]
     Dates: start: 20090702
  2. NICODERM CQ [Suspect]
     Dates: start: 20090702
  3. UNSPECIFIED MEDICATION [Concomitant]
     Route: 062

REACTIONS (2)
  - DRUG ADMINISTRATION ERROR [None]
  - NAUSEA [None]
